FAERS Safety Report 25750234 (Version 1)
Quarter: 2025Q3

REPORT INFORMATION
  Report Type: Spontaneous
  Country: EU (occurrence: EU)
  Receive Date: 20250902
  Receipt Date: 20250902
  Transmission Date: 20251020
  Serious: Yes (Other)
  Sender: MYLAN
  Company Number: EU-SA-2025SA179652

PATIENT
  Age: 43 Year
  Sex: Male

DRUGS (4)
  1. ARIPIPRAZOLE [Suspect]
     Active Substance: ARIPIPRAZOLE
     Indication: Product used for unknown indication
     Dosage: 5 MILLIGRAM, QD
  2. AMISULPRIDE [Suspect]
     Active Substance: AMISULPRIDE
     Indication: Schizophrenia
     Dosage: 800 MILLIGRAM, QD (DAILY)
  3. OLANZAPINE [Suspect]
     Active Substance: OLANZAPINE
     Indication: Schizophrenia
     Dosage: 20 MILLIGRAM, QD (DAILY)
  4. RISPERIDONE [Suspect]
     Active Substance: RISPERIDONE
     Indication: Schizophrenia
     Dosage: 6 MILLIGRAM, QD (DAILY)

REACTIONS (6)
  - Hyperprolactinaemia [Recovered/Resolved]
  - Gynaecomastia [Recovered/Resolved]
  - Galactorrhoea [Recovered/Resolved]
  - Extrapyramidal disorder [Recovered/Resolved]
  - Weight increased [Unknown]
  - Drug ineffective [Unknown]
